FAERS Safety Report 11487456 (Version 1)
Quarter: 2015Q3

REPORT INFORMATION
  Report Type: Spontaneous
  Country: US (occurrence: US)
  Receive Date: 20150910
  Receipt Date: 20150910
  Transmission Date: 20151125
  Serious: No
  Sender: FDA-Public Use
  Company Number: US-TEVA-591121USA

PATIENT
  Age: 28 Year
  Sex: Female

DRUGS (1)
  1. CLARAVIS [Suspect]
     Active Substance: ISOTRETINOIN
     Route: 065
     Dates: start: 20150831

REACTIONS (3)
  - Tonsillar hypertrophy [Unknown]
  - Pain [Unknown]
  - Chills [Unknown]

NARRATIVE: CASE EVENT DATE: 201508
